FAERS Safety Report 7930872-5 (Version None)
Quarter: 2011Q4

REPORT INFORMATION
  Report Type: 
  Country: None (occurrence: None)
  Receive Date: 20111108
  Receipt Date: 20101004
  Transmission Date: 20120403
  Serious: Yes (Other)
  Sender: FDA-Public Use
  Company Number: PHHY2010US66095

PATIENT

DRUGS (1)
  1. ZOMETA [Suspect]

REACTIONS (1)
  - WEIGHT DECREASED [None]
